FAERS Safety Report 16258071 (Version 1)
Quarter: 2019Q2

REPORT INFORMATION
  Report Type: Spontaneous
  Country: FR (occurrence: FR)
  Receive Date: 20190430
  Receipt Date: 20190430
  Transmission Date: 20190711
  Serious: Yes (Hospitalization)
  Sender: FDA-Public Use
  Company Number: FR-CELGENEUS-FRA-20190300036

PATIENT
  Sex: Female

DRUGS (2)
  1. AG-221 [Suspect]
     Active Substance: ENASIDENIB
     Dosage: RESTART
     Route: 048
     Dates: start: 20190225
  2. AG-221 [Suspect]
     Active Substance: ENASIDENIB
     Indication: ACUTE MYELOID LEUKAEMIA RECURRENT
     Dosage: 100 MILLIGRAM
     Route: 048
     Dates: start: 20190130, end: 20190213

REACTIONS (4)
  - Dyspnoea [Not Recovered/Not Resolved]
  - Differentiation syndrome [Recovering/Resolving]
  - Diarrhoea [Recovered/Resolved]
  - Pyrexia [Recovered/Resolved]
